FAERS Safety Report 16952725 (Version 1)
Quarter: 2019Q4

REPORT INFORMATION
  Report Type: Spontaneous
  Country: DE (occurrence: DE)
  Receive Date: 20191023
  Receipt Date: 20191023
  Transmission Date: 20200122
  Serious: Yes (Other)
  Sender: FDA-Public Use
  Company Number: DE-MYLANLABS-2019M1099679

PATIENT
  Age: 64 Year
  Sex: Male

DRUGS (11)
  1. PREDNISONE. [Suspect]
     Active Substance: PREDNISONE
     Indication: IMMUNOSUPPRESSANT DRUG THERAPY
     Dosage: UNK
     Route: 065
     Dates: start: 2016
  2. MYCOPHENOLATE MOFETIL. [Suspect]
     Active Substance: MYCOPHENOLATE MOFETIL
     Dosage: 250 MILLIGRAM, BID
     Route: 065
  3. FRESH FROZEN PLASMA [Concomitant]
     Active Substance: HUMAN PLASMA
     Indication: FOCAL SEGMENTAL GLOMERULOSCLEROSIS
     Dosage: 26 TIMES
     Route: 065
     Dates: start: 201606
  4. MYCOPHENOLATE MOFETIL. [Suspect]
     Active Substance: MYCOPHENOLATE MOFETIL
     Indication: IMMUNOSUPPRESSANT DRUG THERAPY
     Dosage: UNK
     Route: 065
     Dates: start: 2016
  5. MYCOPHENOLATE MOFETIL. [Suspect]
     Active Substance: MYCOPHENOLATE MOFETIL
     Dosage: 500 MILLIGRAM, BID
     Route: 065
  6. TACROLIMUS. [Suspect]
     Active Substance: TACROLIMUS
     Indication: IMMUNOSUPPRESSANT DRUG THERAPY
     Dosage: UNK
     Route: 065
     Dates: start: 2016
  7. TACROLIMUS. [Suspect]
     Active Substance: TACROLIMUS
     Dosage: 1 MILLIGRAM, BID
     Route: 065
  8. RIBAVIRIN. [Suspect]
     Active Substance: RIBAVIRIN
     Indication: HEPATITIS E
     Dosage: 200 MILLIGRAM
     Route: 065
     Dates: start: 201709
  9. PREDNISONE. [Suspect]
     Active Substance: PREDNISONE
     Dosage: 7.5 MILLIGRAM, QD
     Route: 065
  10. PREDNISONE. [Suspect]
     Active Substance: PREDNISONE
     Dosage: 10 MILLIGRAM, QD
     Route: 065
  11. RITUXIMAB. [Suspect]
     Active Substance: RITUXIMAB
     Indication: FOCAL SEGMENTAL GLOMERULOSCLEROSIS
     Dosage: 750 MILLIGRAM
     Route: 065
     Dates: start: 201606

REACTIONS (4)
  - Off label use [Unknown]
  - Anaemia [Unknown]
  - Hepatitis E [Recovered/Resolved]
  - BK virus infection [Recovering/Resolving]

NARRATIVE: CASE EVENT DATE: 201609
